FAERS Safety Report 14338199 (Version 1)
Quarter: 2017Q4

REPORT INFORMATION
  Report Type: Spontaneous
  Country: US (occurrence: US)
  Receive Date: 20171229
  Receipt Date: 20171229
  Transmission Date: 20180321
  Serious: No
  Sender: FDA-Public Use
  Company Number: US-TEVA-2017-US-826718

PATIENT
  Sex: Female

DRUGS (1)
  1. AZITHROMYCIN ANHYDROUS. [Suspect]
     Active Substance: AZITHROMYCIN ANHYDROUS
     Dosage: DOSE STRENGTH: 65-150
     Route: 065

REACTIONS (5)
  - Chest pain [Unknown]
  - Abdominal pain upper [Unknown]
  - Malaise [Unknown]
  - Muscle spasms [Unknown]
  - Muscle spasms [Recovered/Resolved]
